FAERS Safety Report 20350362 (Version 1)
Quarter: 2022Q1

REPORT INFORMATION
  Report Type: Spontaneous
  Country: US (occurrence: None)
  Receive Date: 20220117
  Receipt Date: 20220117
  Transmission Date: 20220423
  Serious: Yes (unspecified)
  Sender: FDA-Public Use
  Company Number: None

PATIENT
  Age: 27 Year
  Sex: Female
  Weight: 60.75 kg

DRUGS (3)
  1. MIRENA [Suspect]
     Active Substance: LEVONORGESTREL
     Indication: Contraception
     Dosage: OTHER QUANTITY : 1 IMPLANT;?OTHER FREQUENCY : 1 TIME EVERY 5 YR;?
     Route: 067
     Dates: start: 20170427, end: 20220117
  2. HYDROXYZINE [Concomitant]
     Active Substance: HYDROXYZINE HYDROCHLORIDE
  3. VITAMIN D3 [Concomitant]
     Active Substance: CHOLECALCIFEROL

REACTIONS (8)
  - Insomnia [None]
  - Irritability [None]
  - Mood swings [None]
  - Crying [None]
  - Nausea [None]
  - Suicidal ideation [None]
  - Anxiety [None]
  - Premenstrual syndrome [None]

NARRATIVE: CASE EVENT DATE: 20220117
